FAERS Safety Report 9528004 (Version 1)
Quarter: 2013Q1

REPORT INFORMATION
  Report Type: Spontaneous
  Country: US (occurrence: None)
  Receive Date: 20130314
  Receipt Date: 20130314
  Transmission Date: 20140127
  Serious: No
  Sender: FDA-Public Use
  Company Number: 1301USA009731

PATIENT
  Age: 54 Year
  Sex: Female
  Weight: 64.4 kg

DRUGS (3)
  1. RIBAVIRIN (RIBAVIRIN) CAPSULE [Suspect]
     Indication: HEPATITIS C
     Dosage: 2 IN THE MORNING AND 3 AT NIGHT, ORAL
     Route: 048
     Dates: start: 20121116
  2. PEGASYS (PEGINTERFERON ALFA-2A) [Suspect]
     Indication: HEPATITIS C
     Dosage: UNK
     Dates: start: 20121116
  3. VICTRELIS (BOCEPREVIR) CAPSULE [Suspect]
     Indication: HEPATITIS C
     Dosage: UNK, ORAL
     Route: 048
     Dates: start: 20121214

REACTIONS (16)
  - Memory impairment [None]
  - Tremor [None]
  - Dry mouth [None]
  - Asthenia [None]
  - Crying [None]
  - Nervousness [None]
  - Depressed mood [None]
  - Feeling cold [None]
  - Pyrexia [None]
  - Weight increased [None]
  - Visual acuity reduced [None]
  - White blood cell count decreased [None]
  - Platelet count decreased [None]
  - Anaemia [None]
  - Disturbance in attention [None]
  - Decreased appetite [None]
